FAERS Safety Report 18444760 (Version 6)
Quarter: 2020Q4

REPORT INFORMATION
  Report Type: Report from Study
  Country: CN (occurrence: CN)
  Receive Date: 20201030
  Receipt Date: 20201217
  Transmission Date: 20210114
  Serious: Yes (Hospitalization)
  Sender: FDA-Public Use
  Company Number: CN-ROCHE-2701200

PATIENT
  Age: 63 Year
  Sex: Male
  Weight: 58.5 kg

DRUGS (18)
  1. LEVOFLOXACIN. [Concomitant]
     Active Substance: LEVOFLOXACIN
     Dates: start: 20200728, end: 20200728
  2. DEXAMETHASONE ACETATE [Concomitant]
     Active Substance: DEXAMETHASONE ACETATE
     Dates: start: 20200730, end: 20200730
  3. CELECOXIB. [Concomitant]
     Active Substance: CELECOXIB
     Dates: start: 20200727, end: 20200728
  4. IBUPROFEN. [Concomitant]
     Active Substance: IBUPROFEN
     Dates: start: 20200728, end: 20200728
  5. PLACEBO [Suspect]
     Active Substance: UNSPECIFIED INGREDIENT
     Indication: DIFFUSE LARGE B-CELL LYMPHOMA
     Dosage: ON 19/AUG/2020, HE RECEIVED MOST RECENT DOSE OF POLATUZUMAB VEDOTIN PRIOR TO AE.
     Route: 042
     Dates: start: 20200731
  6. CIMETIDINE [Concomitant]
     Active Substance: CIMETIDINE
     Dates: start: 20200730, end: 20200730
  7. RITUXIMAB. [Suspect]
     Active Substance: RITUXIMAB
     Indication: DIFFUSE LARGE B-CELL LYMPHOMA
     Dosage: ON 19/AUG/2020, HE RECEIVED MOST RECENT DOSE (626.25 MG) OF RITUXIMAB PRIOR TO AE.
     Route: 041
     Dates: start: 20200730
  8. THYMOPENTIN [Concomitant]
     Active Substance: THYMOPENTIN
     Route: 058
     Dates: start: 20200803, end: 20200803
  9. COMPOUND SULFAMETHOXAZOLE [Concomitant]
     Active Substance: SULFAMETHOXAZOLE
     Dates: start: 20200803, end: 20200803
  10. CELEBREX [Concomitant]
     Active Substance: CELECOXIB
     Dates: start: 20200818, end: 20200818
  11. BENDAMUSTINE [Suspect]
     Active Substance: BENDAMUSTINE
     Indication: DIFFUSE LARGE B-CELL LYMPHOMA
     Dosage: ON 19/AUG/2020, HE RECEIVED MOST RECENT DOSE OF BENDAMUSTINE PRIOR TO AE.
     Route: 042
     Dates: start: 20200731
  12. POLYSACCHARIDE IRON [Concomitant]
     Dates: start: 20200723, end: 20200814
  13. CELEBREX [Concomitant]
     Active Substance: CELECOXIB
     Dates: start: 20200730, end: 20200731
  14. COMPOUND PARACETAMOL AND DIPHENHYDRAMINE HYDROCHLORIDE [Concomitant]
     Dates: start: 20200819, end: 20200819
  15. ENTECAVIR. [Concomitant]
     Active Substance: ENTECAVIR
     Dates: start: 20200731
  16. GAMMA GLOBULIN [Concomitant]
     Active Substance: IMMUNE GLOBULIN NOS
     Route: 042
     Dates: start: 20200803, end: 20200803
  17. CIMETIDINE [Concomitant]
     Active Substance: CIMETIDINE
     Dates: start: 20200819, end: 20200819
  18. PALONOSETRON HYDROCHLORIDE. [Concomitant]
     Active Substance: PALONOSETRON HYDROCHLORIDE
     Dates: start: 20200731, end: 20200801

REACTIONS (1)
  - Intervertebral disc protrusion [Not Recovered/Not Resolved]

NARRATIVE: CASE EVENT DATE: 20200821
